FAERS Safety Report 25019672 (Version 1)
Quarter: 2025Q1

REPORT INFORMATION
  Report Type: Spontaneous
  Country: ZA (occurrence: ZA)
  Receive Date: 20250227
  Receipt Date: 20250227
  Transmission Date: 20250408
  Serious: Yes (Disabling)
  Sender: NOVARTIS
  Company Number: ZA-002147023-NVSC2019ZA023923

PATIENT
  Age: 33 Year
  Sex: Female

DRUGS (7)
  1. LINEZOLID [Suspect]
     Active Substance: LINEZOLID
     Indication: Tuberculosis
     Dosage: 600 MG, QD
     Route: 048
     Dates: start: 20190411, end: 20190917
  2. LAMPRENE [Suspect]
     Active Substance: CLOFAZIMINE
     Indication: Tuberculosis
     Dosage: 100 MG, QD
     Route: 048
     Dates: start: 20190411
  3. DELAMANID [Suspect]
     Active Substance: DELAMANID
     Indication: Tuberculosis
     Dosage: 100 MG, BID
     Route: 048
     Dates: start: 20190411
  4. BEDAQUILINE [Suspect]
     Active Substance: BEDAQUILINE
     Indication: Tuberculosis
     Dosage: 200 MG, TID
     Route: 048
     Dates: start: 20190411
  5. TERIZIDONE [Suspect]
     Active Substance: TERIZIDONE
     Indication: Tuberculosis
     Dosage: 250/500 MG, BID
     Route: 048
     Dates: start: 20190411
  6. EMTRICITABINE\TENOFOVIR DISOPROXIL FUMARATE [Concomitant]
     Active Substance: EMTRICITABINE\TENOFOVIR DISOPROXIL FUMARATE
     Indication: Product used for unknown indication
     Route: 065
  7. RALTEGRAVIR [Concomitant]
     Active Substance: RALTEGRAVIR
     Indication: Product used for unknown indication
     Route: 065

REACTIONS (5)
  - Neuropathy peripheral [Recovering/Resolving]
  - Pain in extremity [Unknown]
  - Musculoskeletal stiffness [Unknown]
  - Hypoaesthesia [Unknown]
  - Peripheral coldness [Unknown]

NARRATIVE: CASE EVENT DATE: 20190917
